FAERS Safety Report 6711890-1 (Version None)
Quarter: 2010Q2

REPORT INFORMATION
  Report Type: 
  Country: None (occurrence: None)
  Receive Date: 20100505
  Receipt Date: 20100430
  Transmission Date: 20101027
  Serious: Yes (Disabling)
  Sender: FDA-Public Use
  Company Number: US-MERCK-1005USA00039

PATIENT
  Age: 60 Year
  Sex: Male

DRUGS (4)
  1. ZOCOR [Suspect]
     Route: 048
     Dates: start: 20090305
  2. FOLIC ACID [Concomitant]
     Route: 065
  3. HYDROCHLOROTHIAZIDE AND LISINOPRIL [Concomitant]
     Route: 065
  4. VIAGRA [Suspect]
     Route: 065

REACTIONS (1)
  - BLINDNESS UNILATERAL [None]
